FAERS Safety Report 16954663 (Version 1)
Quarter: 2019Q4

REPORT INFORMATION
  Report Type: Report from Study
  Country: CA (occurrence: CA)
  Receive Date: 20191024
  Receipt Date: 20191024
  Transmission Date: 20200122
  Serious: Yes (Other)
  Sender: FDA-Public Use
  Company Number: PHHY2017CA041372

PATIENT
  Sex: Female

DRUGS (1)
  1. GILENYA [Suspect]
     Active Substance: FINGOLIMOD HYDROCHLORIDE
     Indication: PRODUCT USED FOR UNKNOWN INDICATION
     Dosage: UNK
     Route: 048
     Dates: start: 20161215

REACTIONS (8)
  - Tinnitus [Unknown]
  - Headache [Unknown]
  - Localised infection [Unknown]
  - Insomnia [Unknown]
  - Neuralgia [Not Recovered/Not Resolved]
  - Oligomenorrhoea [Unknown]
  - Injection site pain [Not Recovered/Not Resolved]
  - Nerve injury [Unknown]
